FAERS Safety Report 25721636 (Version 1)
Quarter: 2025Q3

REPORT INFORMATION
  Report Type: Spontaneous
  Country: US (occurrence: US)
  Receive Date: 20250825
  Receipt Date: 20250825
  Transmission Date: 20251020
  Serious: No
  Sender: PFIZER
  Company Number: US-PFIZER INC-202500167213

PATIENT
  Sex: Female

DRUGS (2)
  1. PAXLOVID [Interacting]
     Active Substance: NIRMATRELVIR\RITONAVIR
  2. FLOVENT [Interacting]
     Active Substance: FLUTICASONE PROPIONATE

REACTIONS (1)
  - Labelled drug-drug interaction medication error [Unknown]
